FAERS Safety Report 5814669-8 (Version None)
Quarter: 2008Q3

REPORT INFORMATION
  Report Type: 
  Country: None (occurrence: None)
  Receive Date: 20080718
  Receipt Date: 20080307
  Transmission Date: 20090109
  Serious: No
  Sender: FDA-Public Use
  Company Number: US-KINGPHARMUSA00001-K200800294

PATIENT

DRUGS (5)
  1. LEVOXYL [Suspect]
     Indication: HYPOTHYROIDISM
     Dosage: 125 MCG, QD
     Dates: start: 20050101
  2. LEVOXYL [Suspect]
     Dosage: 150 MCG, QD
     Route: 048
  3. LEVOXYL [Suspect]
     Dosage: 175 MCG, QD
     Route: 048
  4. LEVOXYL [Suspect]
     Dosage: 200 MCG, QD
     Route: 048
     Dates: end: 20080101
  5. LEVOXYL [Suspect]
     Dosage: 175 MCG, QD
     Route: 048
     Dates: start: 20080101

REACTIONS (2)
  - MUSCLE SPASMS [None]
  - THYROID FUNCTION TEST ABNORMAL [None]
